FAERS Safety Report 9617785 (Version 4)
Quarter: 2014Q1

REPORT INFORMATION
  Report Type: Spontaneous
  Country: US (occurrence: US)
  Receive Date: 20131011
  Receipt Date: 20140204
  Transmission Date: 20141002
  Serious: Yes (Hospitalization, Other)
  Sender: FDA-Public Use
  Company Number: US-ALLERGAN-1315017US

PATIENT
  Age: 58 Year
  Sex: Female

DRUGS (22)
  1. BOTOX COSMETIC [Suspect]
     Indication: PRODUCT USED FOR UNKNOWN INDICATION
     Dosage: UNK
     Dates: start: 20130909, end: 20130909
  2. JUVEDERM ULTRA PLUS XC [Suspect]
     Indication: PRODUCT USED FOR UNKNOWN INDICATION
     Dosage: UNK
     Dates: start: 20130909, end: 20130909
  3. JUVEDERM ULTRA PLUS XC [Suspect]
     Dosage: UNK
     Dates: start: 20130909, end: 20130909
  4. ECOTRIN [Concomitant]
  5. PREMARIN [Concomitant]
  6. SOTALOL [Concomitant]
  7. XANAX [Concomitant]
  8. DILANTIN [Concomitant]
  9. TRILIPIX [Concomitant]
  10. LIPITOR [Concomitant]
  11. NEXIUM [Concomitant]
  12. LORATAB [Concomitant]
  13. LASIX [Concomitant]
  14. POTASSIUM [Concomitant]
  15. SYNTHROID [Concomitant]
  16. XOPENEX [Concomitant]
  17. SPIRIVA [Concomitant]
  18. VASOTEC [Concomitant]
  19. NITROGLYCERINE [Concomitant]
  20. ZYRTEC [Concomitant]
  21. FOLIC ACID [Concomitant]
  22. VITAMIN D3 [Concomitant]

REACTIONS (15)
  - Angioedema [Unknown]
  - Dyspnoea [Unknown]
  - Photophobia [Unknown]
  - Visual acuity reduced [Unknown]
  - Swelling face [Not Recovered/Not Resolved]
  - Lip haematoma [Unknown]
  - Lip pain [Unknown]
  - Cheilitis [Unknown]
  - Skin disorder [Unknown]
  - Dysuria [Unknown]
  - Lip discolouration [Unknown]
  - Eye swelling [Unknown]
  - Malaise [Unknown]
  - Visual impairment [Unknown]
  - Vision blurred [Unknown]
